FAERS Safety Report 9341346 (Version 1)
Quarter: 2013Q2

REPORT INFORMATION
  Report Type: Spontaneous
  Country: TW (occurrence: TW)
  Receive Date: 20130611
  Receipt Date: 20130611
  Transmission Date: 20140414
  Serious: Yes (Hospitalization, Other)
  Sender: FDA-Public Use
  Company Number: TW-009507513-1306TWN003147

PATIENT
  Age: 61 Year
  Sex: Female

DRUGS (1)
  1. ALENDRONATE SODIUM [Suspect]
     Indication: OSTEOPOROSIS
     Dosage: 70 MG, QW

REACTIONS (3)
  - Atypical femur fracture [Unknown]
  - Open reduction of fracture [Unknown]
  - Internal fixation of fracture [Unknown]
